FAERS Safety Report 20917273 (Version 1)
Quarter: 2022Q2

REPORT INFORMATION
  Report Type: Spontaneous
  Country: CN (occurrence: CN)
  Receive Date: 20220606
  Receipt Date: 20220606
  Transmission Date: 20220721
  Serious: Yes (Death, Life-Threatening)
  Sender: FDA-Public Use
  Company Number: CN-AstraZeneca-2022A201073

PATIENT

DRUGS (4)
  1. GOSERELIN [Suspect]
     Active Substance: GOSERELIN
     Indication: Breast cancer
     Dosage: 3.6 MG, MONTHLY
     Route: 058
     Dates: start: 20220106, end: 20220517
  2. ZOLADEX [Suspect]
     Active Substance: GOSERELIN ACETATE
     Indication: Breast cancer
     Dosage: UNK
     Route: 065
  3. FULVESTRANT [Suspect]
     Active Substance: FULVESTRANT
     Indication: Breast cancer
     Dosage: 500 MG, MONTHLY
     Route: 030
     Dates: start: 20220106, end: 20220517
  4. ABEMACICLIB [Suspect]
     Active Substance: ABEMACICLIB
     Indication: Breast cancer
     Dosage: 150 MG, BID (150 MG TWO TIMES A DAY)
     Route: 048
     Dates: start: 20220106, end: 20220517

REACTIONS (11)
  - Chest discomfort [Fatal]
  - Blood bilirubin increased [Fatal]
  - Anaemia [Fatal]
  - Asthenia [Fatal]
  - Decreased appetite [Fatal]
  - Oedema peripheral [Fatal]
  - Multiple organ dysfunction syndrome [Fatal]
  - Septic shock [Fatal]
  - Malignant neoplasm progression [Fatal]
  - Myelosuppression [Fatal]
  - Disseminated intravascular coagulation [Fatal]

NARRATIVE: CASE EVENT DATE: 20220518
